FAERS Safety Report 8508608-9 (Version None)
Quarter: 2012Q3

REPORT INFORMATION
  Report Type: 
  Country: None (occurrence: None)
  Receive Date: 20120713
  Receipt Date: 20120710
  Transmission Date: 20120928
  Serious: No
  Sender: FDA-Public Use
  Company Number: US-PFIZER INC-2012165934

PATIENT
  Sex: Male
  Weight: 79 kg

DRUGS (1)
  1. IBUPROFEN (ADVIL) [Suspect]
     Indication: TOOTHACHE
     Dosage: 400 MG, 4X/DAY
     Dates: start: 20120709

REACTIONS (2)
  - DIZZINESS [None]
  - HEADACHE [None]
